FAERS Safety Report 5913418-2 (Version None)
Quarter: 2008Q4

REPORT INFORMATION
  Report Type: 
  Country: None (occurrence: None)
  Receive Date: 20081008
  Receipt Date: 20081008
  Transmission Date: 20090506
  Serious: Yes (Hospitalization)
  Sender: FDA-Public Use
  Company Number: None

PATIENT
  Weight: 87.6 kg

DRUGS (8)
  1. RISPERIDONE [Suspect]
     Indication: MAJOR DEPRESSION
     Dosage: 4 MG AT BEDTIME
     Dates: start: 20080225
  2. RISPERIDONE [Suspect]
     Indication: POST-TRAUMATIC STRESS DISORDER
     Dosage: 4 MG AT BEDTIME
     Dates: start: 20080225
  3. ATENOLOL [Concomitant]
  4. LOVASTATIN [Concomitant]
  5. VENLAFAXINE HCL [Concomitant]
  6. SERTRALINE [Concomitant]
  7. BUSPAR [Concomitant]
  8. DOXAZOSIN MESYLATE [Concomitant]

REACTIONS (1)
  - SUICIDAL IDEATION [None]
